FAERS Safety Report 9349864 (Version 2)
Quarter: 2013Q2

REPORT INFORMATION
  Report Type: Spontaneous
  Country: US (occurrence: None)
  Receive Date: 20130611
  Receipt Date: 20130613
  Transmission Date: 20140414
  Serious: Yes (Other)
  Sender: FDA-Public Use
  Company Number: FK201301909

PATIENT
  Age: 51 Year
  Sex: Female

DRUGS (4)
  1. FLUOROURACIL (MANUFACTURER UNKNOWN) (FLUOROURACIL) (FLUOROURACIL) [Suspect]
     Indication: SMALL INTESTINE CARCINOMA
     Dosage: INTRAVENEOUS (NOT OTHERWISE SPECIFIED)
     Route: 042
  2. LEUCOVORIN CALCIUM [Suspect]
     Indication: SMALL INTESTINE CARCINOMA
     Dosage: INTRAVENOUS (NOT OTHERWISE SPECIFIED)
     Route: 042
  3. OXALIPLATIN [Suspect]
     Indication: SMALL INTESTINE CARCINOMA
     Dosage: IU
  4. IRINOTECAN [Suspect]
     Indication: SMALL INTESTINE CARCINOMA
     Dosage: INTRAVENOUS (NOT OTHERWISE SPECIFIED)
     Route: 042

REACTIONS (16)
  - Multi-organ failure [None]
  - Nausea [None]
  - Vomiting [None]
  - Mental status changes [None]
  - Ammonia increased [None]
  - Pulmonary oedema [None]
  - Pleural effusion [None]
  - Dilatation ventricular [None]
  - Ventricular hyperkinesia [None]
  - Intracardiac thrombus [None]
  - Renal failure [None]
  - Pancytopenia [None]
  - Neutropenia [None]
  - Pyrexia [None]
  - Electroencephalogram abnormal [None]
  - Nuclear magnetic resonance imaging brain abnormal [None]
